FAERS Safety Report 11490840 (Version 1)
Quarter: 2015Q3

REPORT INFORMATION
  Report Type: Other
  Country: US (occurrence: US)
  Receive Date: 20150910
  Receipt Date: 20150910
  Transmission Date: 20151125
  Serious: Yes (Hospitalization, Other)
  Sender: FDA-Public Use
  Company Number: US-SHIRE-US201511123

PATIENT
  Sex: Male
  Weight: 75.74 kg

DRUGS (3)
  1. ZANTAC [Concomitant]
     Active Substance: RANITIDINE HYDROCHLORIDE
     Indication: GASTROOESOPHAGEAL REFLUX PROPHYLAXIS
     Dosage: 75 MG, UNKNOWN
     Route: 048
  2. FLOMAX [Concomitant]
     Active Substance: TAMSULOSIN HYDROCHLORIDE
     Indication: URINARY RETENTION
     Dosage: UNK, UNKNOWN
     Route: 065
  3. CARBATROL [Suspect]
     Active Substance: CARBAMAZEPINE
     Indication: EPILEPSY
     Dosage: 300 MG, 2X/DAY:BID
     Route: 048

REACTIONS (12)
  - Cold sweat [Unknown]
  - Tremor [Unknown]
  - Feeling hot [Unknown]
  - Tooth loss [Unknown]
  - Vision blurred [Unknown]
  - Hospitalisation [Unknown]
  - Hyperhidrosis [Unknown]
  - Feeling abnormal [Unknown]
  - Weight decreased [Unknown]
  - Blood sodium decreased [Not Recovered/Not Resolved]
  - Hot flush [Unknown]
  - Dizziness [Unknown]
